FAERS Safety Report 9717573 (Version 3)
Quarter: 2013Q4

REPORT INFORMATION
  Report Type: Spontaneous
  Country: US (occurrence: US)
  Receive Date: 20131127
  Receipt Date: 20131229
  Transmission Date: 20140711
  Serious: Yes (Other)
  Sender: FDA-Public Use
  Company Number: US-CELGENEUS-163-21880-13093817

PATIENT
  Age: 61 Year
  Sex: Male
  Weight: 63.3 kg

DRUGS (47)
  1. REVLIMID [Suspect]
     Indication: PLASMA CELL MYELOMA
     Dosage: 25 MILLIGRAM
     Route: 048
     Dates: start: 20071015
  2. REVLIMID [Suspect]
     Indication: PLASMACYTOMA
     Dosage: 25 MILLIGRAM
     Route: 048
  3. REVLIMID [Suspect]
     Dosage: 25 MILLIGRAM
     Route: 048
  4. REVLIMID [Suspect]
     Dosage: 25 MILLIGRAM
     Route: 048
     Dates: start: 201203
  5. BORTEZOMIB [Suspect]
     Indication: PLASMA CELL MYELOMA
     Route: 065
  6. DEXAMETHASONE [Concomitant]
     Indication: PLASMA CELL MYELOMA
     Route: 065
  7. GAMUNEX [Concomitant]
     Indication: PRODUCT USED FOR UNKNOWN INDICATION
     Route: 065
  8. ZYRTEC [Concomitant]
     Indication: PRODUCT USED FOR UNKNOWN INDICATION
     Route: 065
  9. NEURONTIN [Concomitant]
     Indication: PRODUCT USED FOR UNKNOWN INDICATION
     Route: 048
  10. NEURONTIN [Concomitant]
     Dosage: 900 MILLIGRAM
     Route: 048
  11. NEURONTIN [Concomitant]
     Dosage: 1800 MILLIGRAM
     Route: 048
  12. LEXAPRO [Concomitant]
     Indication: PRODUCT USED FOR UNKNOWN INDICATION
     Route: 065
  13. CALCIUM WITH VITAMIN [Concomitant]
     Indication: PRODUCT USED FOR UNKNOWN INDICATION
     Route: 065
  14. DECADRON [Concomitant]
     Indication: PRODUCT USED FOR UNKNOWN INDICATION
     Route: 065
  15. ZOMETA [Concomitant]
     Indication: PRODUCT USED FOR UNKNOWN INDICATION
     Route: 065
  16. ASPIRIN [Concomitant]
     Indication: PRODUCT USED FOR UNKNOWN INDICATION
     Dosage: 81 MILLIGRAM
     Route: 048
  17. CALCIUM [Concomitant]
     Indication: PRODUCT USED FOR UNKNOWN INDICATION
     Dosage: 500 MILLIGRAM
     Route: 048
  18. MELPHALAN [Concomitant]
     Indication: PRODUCT USED FOR UNKNOWN INDICATION
     Route: 065
  19. FLUID [Concomitant]
     Indication: PRODUCT USED FOR UNKNOWN INDICATION
     Route: 041
  20. FLUID [Concomitant]
     Route: 048
  21. ZOVIRAX [Concomitant]
     Indication: PROPHYLAXIS
     Dosage: 800 MILLIGRAM
     Route: 048
  22. ZOVIRAX [Concomitant]
     Indication: ANTIFUNGAL PROPHYLAXIS
  23. COLACE [Concomitant]
     Indication: PRODUCT USED FOR UNKNOWN INDICATION
     Dosage: 250 MILLIGRAM
     Route: 048
  24. SINEQUAN [Concomitant]
     Indication: PRODUCT USED FOR UNKNOWN INDICATION
     Dosage: 25 MILLIGRAM
     Route: 048
  25. GLUCOTROL [Concomitant]
     Indication: DIABETES MELLITUS
     Dosage: 10 MILLIGRAM
     Route: 048
  26. ATIVAN [Concomitant]
     Indication: NAUSEA
     Dosage: 1 - 2 TABLETS
     Route: 048
  27. ATIVAN [Concomitant]
     Indication: ANXIETY
  28. ZOFRAN [Concomitant]
     Indication: NAUSEA
     Dosage: 24 MILLIGRAM
     Route: 048
  29. ZOFRAN [Concomitant]
     Indication: VOMITING
  30. SULFAMETHOXAZOLE AND TRIMETHOPRIM [Concomitant]
     Indication: ANTIFUNGAL PROPHYLAXIS
     Dosage: 800 - 160MG
     Route: 048
  31. SULFAMETHOXAZOLE AND TRIMETHOPRIM [Concomitant]
     Indication: PROPHYLAXIS
  32. AMBIEN [Concomitant]
     Indication: PRODUCT USED FOR UNKNOWN INDICATION
     Dosage: 10 MILLIGRAM
     Route: 048
  33. MARINOL [Concomitant]
     Indication: NAUSEA
     Dosage: 7.5 MILLIGRAM
     Route: 048
  34. MARINOL [Concomitant]
     Indication: DECREASED APPETITE
  35. PEPCID [Concomitant]
     Indication: NAUSEA
     Dosage: 20 MILLIGRAM
     Route: 048
  36. PEPCID [Concomitant]
     Indication: DECREASED APPETITE
  37. MTX [Concomitant]
     Indication: PRODUCT USED FOR UNKNOWN INDICATION
     Route: 065
     Dates: start: 20131126
  38. MTX [Concomitant]
     Route: 065
  39. LEUCOVORIN [Concomitant]
     Indication: PRODUCT USED FOR UNKNOWN INDICATION
     Route: 065
  40. LEUCOVORIN [Concomitant]
     Route: 048
  41. PURINETHOL [Concomitant]
     Indication: PRODUCT USED FOR UNKNOWN INDICATION
     Dosage: 100 MILLIGRAM
     Route: 048
  42. ACYCLOVIR [Concomitant]
     Indication: PRODUCT USED FOR UNKNOWN INDICATION
     Dosage: 800 MILLIGRAM
     Route: 048
  43. OS-CAL [Concomitant]
     Indication: PRODUCT USED FOR UNKNOWN INDICATION
     Dosage: 1000 MILLIGRAM
     Route: 048
  44. DOCUSATE SODIUM [Concomitant]
     Indication: PRODUCT USED FOR UNKNOWN INDICATION
     Dosage: 500 MILLIGRAM
     Route: 048
  45. ROXICODONE [Concomitant]
     Indication: PAIN
     Route: 048
  46. COMPAZINE [Concomitant]
     Indication: NAUSEA
     Route: 048
  47. COMPAZINE [Concomitant]
     Indication: VOMITING

REACTIONS (6)
  - Acute lymphocytic leukaemia [Unknown]
  - Leukopenia [Recovered/Resolved]
  - Pruritus [Recovered/Resolved]
  - Pyrexia [Recovered/Resolved]
  - Dry mouth [Recovered/Resolved]
  - Thrombocytopenia [Unknown]
